FAERS Safety Report 21255486 (Version 1)
Quarter: 2022Q3

REPORT INFORMATION
  Report Type: Spontaneous
  Country: DE (occurrence: DE)
  Receive Date: 20220825
  Receipt Date: 20220825
  Transmission Date: 20221026
  Serious: Yes (Hospitalization, Other)
  Sender: FDA-Public Use
  Company Number: DE-NOVARTISPH-NVSC2022DE189918

PATIENT
  Age: 67 Year
  Sex: Female

DRUGS (9)
  1. CARBOPLATIN [Suspect]
     Active Substance: CARBOPLATIN
     Indication: Breast cancer
     Dosage: UNK (D1, Q21D)
     Route: 065
     Dates: start: 201412, end: 201506
  2. CARBOPLATIN [Suspect]
     Active Substance: CARBOPLATIN
     Indication: Ovarian cancer
     Dosage: UNK (D1, Q21D)
     Route: 065
     Dates: start: 202010, end: 202101
  3. CARBOPLATIN [Suspect]
     Active Substance: CARBOPLATIN
     Indication: Lymphatic disorder
  4. PACLITAXEL [Suspect]
     Active Substance: PACLITAXEL
     Indication: Ovarian cancer
     Dosage: 80 MG/M2 (D1+8+15, Q21D)
     Route: 065
     Dates: start: 201412, end: 201506
  5. BEVACIZUMAB [Suspect]
     Active Substance: BEVACIZUMAB
     Indication: Ovarian cancer
     Dosage: 15 MG/KG (D1, Q21D)
     Route: 065
     Dates: start: 201412, end: 201506
  6. BEVACIZUMAB [Suspect]
     Active Substance: BEVACIZUMAB
     Dosage: 15 MG/KG (Q21D)
     Route: 065
     Dates: start: 201506, end: 201608
  7. DENOSUMAB [Suspect]
     Active Substance: DENOSUMAB
     Indication: Squamous cell carcinoma of lung
     Dosage: 120 MG (Q28D)
     Route: 058
     Dates: start: 202009, end: 202101
  8. DENOSUMAB [Suspect]
     Active Substance: DENOSUMAB
     Indication: Metastasis
     Dosage: 120 MG (Q28D)
     Route: 058
     Dates: start: 202103
  9. PEMBROLIZUMAB [Suspect]
     Active Substance: PEMBROLIZUMAB
     Indication: Lymphatic disorder
     Dosage: 200 MG (D1 Q21D)
     Route: 065
     Dates: start: 202010, end: 202101

REACTIONS (9)
  - Metastases to the mediastinum [Unknown]
  - General physical health deterioration [Unknown]
  - Dyspnoea [Unknown]
  - Anaemia [Unknown]
  - Squamous cell carcinoma of lung [Unknown]
  - Metastases to bone [Unknown]
  - Metastases to central nervous system [Unknown]
  - Brain cancer metastatic [Unknown]
  - Lymphatic disorder [Unknown]

NARRATIVE: CASE EVENT DATE: 20200701
